FAERS Safety Report 4381502-3 (Version None)
Quarter: 2004Q2

REPORT INFORMATION
  Report Type: 
  Country: None (occurrence: None)
  Receive Date: 20040616
  Receipt Date: 20040608
  Transmission Date: 20050107
  Serious: Yes (Life-Threatening, Hospitalization)
  Sender: FDA-Public Use
  Company Number: F03200400064

PATIENT
  Sex: Female
  Weight: 61.5 kg

DRUGS (12)
  1. ELOXATIN [Suspect]
     Indication: COLORECTAL CANCER
     Dosage: 85 MG/M2 Q2W - INTRAVENOUS NOS
     Route: 042
     Dates: start: 20040603, end: 20040603
  2. AVASTIN [Suspect]
     Dosage: 10 MG/KG Q2W - UNKNOWN
  3. XELODA [Suspect]
     Indication: COLORECTAL CANCER
     Dosage: 800 MG/MW BID - UNKNOWN
     Dates: start: 20040604, end: 20040606
  4. PROCHLORPERAZINE EDISYLATE [Concomitant]
  5. MULTI-VITAMINS [Concomitant]
  6. ONDANSETRON HCL [Concomitant]
  7. CALCIUM [Concomitant]
  8. VITAMIN B6 [Concomitant]
  9. VITAMIN C [Concomitant]
  10. DEXAMETHASONE [Concomitant]
  11. FISH OIL [Concomitant]
  12. PREDNISONE [Concomitant]

REACTIONS (1)
  - INTESTINAL PERFORATION [None]
